FAERS Safety Report 10724590 (Version 1)
Quarter: 2015Q1

REPORT INFORMATION
  Report Type: Spontaneous
  Country: US (occurrence: None)
  Receive Date: 20150116
  Receipt Date: 20150116
  Transmission Date: 20150721
  Serious: No
  Sender: FDA-Public Use
  Company Number: None

PATIENT
  Age: 63 Year
  Sex: Male
  Weight: 92 kg

DRUGS (2)
  1. LEUPROLIDE ACETATE. [Suspect]
     Active Substance: LEUPROLIDE ACETATE
     Dates: end: 20140909
  2. CASODEX [Suspect]
     Active Substance: BICALUTAMIDE
     Dates: end: 20140806

REACTIONS (3)
  - Hyperglycaemia [None]
  - Drug administration error [None]
  - Treatment noncompliance [None]

NARRATIVE: CASE EVENT DATE: 20141202
